FAERS Safety Report 7898376-6 (Version None)
Quarter: 2011Q4

REPORT INFORMATION
  Report Type: 
  Country: None (occurrence: None)
  Receive Date: 20111107
  Receipt Date: 20111103
  Transmission Date: 20120403
  Serious: Yes (Hospitalization)
  Sender: FDA-Public Use
  Company Number: NL-PFIZER INC-2011269117

PATIENT

DRUGS (1)
  1. DOSTINEX [Suspect]

REACTIONS (3)
  - HALLUCINATION [None]
  - OVERDOSE [None]
  - DELIRIUM [None]
